FAERS Safety Report 6885941-8 (Version None)
Quarter: 2010Q3

REPORT INFORMATION
  Report Type: 
  Country: None (occurrence: None)
  Receive Date: 20100729
  Receipt Date: 20090120
  Transmission Date: 20110219
  Serious: Yes (Life-Threatening, Other)
  Sender: FDA-Public Use
  Company Number: US-PFIZER INC-2008155090

PATIENT
  Sex: Male
  Weight: 97.052 kg

DRUGS (2)
  1. CELEBREX [Suspect]
     Indication: MIGRAINE
     Dosage: 200 MG, AS NEEDED
     Route: 048
     Dates: start: 20071113, end: 20081102
  2. ADVAIR DISKUS 100/50 [Concomitant]
     Dosage: UNK

REACTIONS (3)
  - ANAPHYLACTIC REACTION [None]
  - DYSPNOEA [None]
  - PRURITUS [None]
